FAERS Safety Report 7101367-6 (Version None)
Quarter: 2010Q4

REPORT INFORMATION
  Report Type: 
  Country: None (occurrence: None)
  Receive Date: 20101115
  Receipt Date: 20100104
  Transmission Date: 20110411
  Serious: No
  Sender: FDA-Public Use
  Company Number: US-PFIZER INC-2010001202

PATIENT
  Sex: Male
  Weight: 94.8 kg

DRUGS (1)
  1. MEDROL [Suspect]
     Indication: SARCOIDOSIS
     Dosage: 200 MG, 2X/DAY
     Dates: start: 19670101, end: 19750101

REACTIONS (1)
  - DRUG INEFFECTIVE [None]
